FAERS Safety Report 8915232 (Version 1)
Quarter: 2012Q4

REPORT INFORMATION
  Report Type: 
  Country: US (occurrence: US)
  Receive Date: 20121119
  Receipt Date: 20121119
  Transmission Date: 20130627
  Serious: No
  Sender: FDA-Public Use
  Company Number: US-PFIZER INC-2012288145

PATIENT
  Sex: Female

DRUGS (1)
  1. PRISTIQ [Suspect]
     Dosage: UNK
     Dates: start: 201211

REACTIONS (3)
  - Heart rate increased [Unknown]
  - Paraesthesia [Unknown]
  - Tremor [Unknown]
